FAERS Safety Report 8085735-4 (Version None)
Quarter: 2012Q1

REPORT INFORMATION
  Report Type: 
  Country: None (occurrence: None)
  Receive Date: 20120128
  Receipt Date: 20110608
  Transmission Date: 20120608
  Serious: No
  Sender: FDA-Public Use
  Company Number: US-ABBOTT-11P-163-0731072-00

PATIENT
  Sex: Female

DRUGS (4)
  1. HUMIRA [Suspect]
     Indication: CROHN'S DISEASE
     Route: 058
     Dates: start: 20110519
  2. HUMIRA [Suspect]
     Indication: POLYARTHRITIS
  3. VITAMIN D WITH CALCIUM [Concomitant]
     Indication: VITAMIN SUPPLEMENTATION
  4. IMODIUM [Concomitant]
     Indication: DIARRHOEA

REACTIONS (1)
  - DIARRHOEA [None]
